FAERS Safety Report 12305237 (Version 1)
Quarter: 2016Q2

REPORT INFORMATION
  Report Type: Spontaneous
  Country: US (occurrence: US)
  Receive Date: 20160426
  Receipt Date: 20160426
  Transmission Date: 20160815
  Serious: Yes (Other)
  Sender: FDA-Public Use
  Company Number: US-ELI_LILLY_AND_COMPANY-US201604004744

PATIENT
  Age: 54 Year
  Sex: Male

DRUGS (4)
  1. DOCETAXEL. [Concomitant]
     Active Substance: DOCETAXEL
     Indication: ANGIOSARCOMA METASTATIC
     Dosage: UNK
     Dates: start: 20150722
  2. FUROSEMIDA                         /00032601/ [Concomitant]
     Active Substance: FUROSEMIDE
     Indication: PRODUCT USED FOR UNKNOWN INDICATION
  3. GEMCITABINE HYDROCHLORIDE. [Suspect]
     Active Substance: GEMCITABINE HYDROCHLORIDE
     Indication: ANGIOSARCOMA METASTATIC
     Dosage: UNK, UNKNOWN
     Route: 065
     Dates: start: 20150722
  4. CRIZOTINIB [Suspect]
     Active Substance: CRIZOTINIB
     Indication: ANGIOSARCOMA METASTATIC
     Dosage: 250 MG, BID
     Route: 048
     Dates: start: 20150903

REACTIONS (10)
  - Visual impairment [Recovering/Resolving]
  - Musculoskeletal pain [Unknown]
  - Abdominal pain [Unknown]
  - Erectile dysfunction [Unknown]
  - Abdominal pain upper [Unknown]
  - Hepatic function abnormal [Unknown]
  - Deep vein thrombosis [Unknown]
  - Oedema peripheral [Unknown]
  - Malignant neoplasm progression [Unknown]
  - Photopsia [Recovering/Resolving]

NARRATIVE: CASE EVENT DATE: 20151212
